FAERS Safety Report 23192304 (Version 2)
Quarter: 2023Q4

REPORT INFORMATION
  Report Type: Spontaneous
  Country: SE (occurrence: SE)
  Receive Date: 20231116
  Receipt Date: 20231201
  Transmission Date: 20240109
  Serious: Yes (Hospitalization, Other)
  Sender: FDA-Public Use
  Company Number: SE-CELLTRION HEALTHCARE HUNGARY KFT-2023SE020852

PATIENT
  Age: 76 Year
  Sex: Male

DRUGS (7)
  1. LENALIDOMIDE [Suspect]
     Active Substance: LENALIDOMIDE
     Indication: Follicular lymphoma
     Dosage: QD DAILY FOR 3 WEEKS WITH A 1-WEEK PAUSE
     Route: 065
     Dates: start: 202111
  2. RITUXIMAB [Suspect]
     Active Substance: RITUXIMAB
     Indication: Follicular lymphoma
     Dosage: MONTHLY (ONCE A MONTH)
     Route: 065
     Dates: start: 202111
  3. EPCORITAMAB [Suspect]
     Active Substance: EPCORITAMAB
     Indication: Follicular lymphoma
     Dosage: MONTHLY (ONCE A MONTH)
     Route: 065
     Dates: start: 202111
  4. SARS-CoV-2 vaccine [Concomitant]
     Dosage: FOUR DOSES
     Route: 065
  5. SARS-CoV-2 vaccine [Concomitant]
     Dosage: FOUR DOSES
     Route: 065
  6. SARS-CoV-2 vaccine [Concomitant]
     Dosage: FOUR DOSES
     Route: 065
     Dates: start: 202203
  7. SARS-CoV-2 vaccine [Concomitant]
     Dosage: FOUR DOSES
     Route: 065

REACTIONS (2)
  - COVID-19 [Recovered/Resolved]
  - Vaccination failure [Unknown]

NARRATIVE: CASE EVENT DATE: 20220401
